FAERS Safety Report 4688852-1 (Version None)
Quarter: 2005Q2

REPORT INFORMATION
  Report Type: 
  Country: None (occurrence: None)
  Receive Date: 20050613
  Receipt Date: 20050609
  Transmission Date: 20051028
  Serious: Yes (Hospitalization)
  Sender: FDA-Public Use
  Company Number: FR-GLAXOSMITHKLINE-B0383901A

PATIENT
  Age: 63 Year
  Sex: Female

DRUGS (6)
  1. CLAMOXYL [Suspect]
     Indication: ACUTE SINUSITIS
     Route: 048
     Dates: start: 20041001, end: 20041001
  2. MUXOL [Suspect]
     Indication: ACUTE SINUSITIS
     Route: 048
     Dates: start: 20041001, end: 20041001
  3. OGAST [Suspect]
     Indication: ACUTE SINUSITIS
     Route: 048
     Dates: start: 20041001, end: 20041001
  4. PIVALONE [Suspect]
     Indication: ACUTE SINUSITIS
     Route: 045
     Dates: start: 20041001, end: 20041001
  5. TAREG [Concomitant]
     Route: 048
  6. OSTEOPOROSIS MEDICATION [Concomitant]
     Indication: OSTEOPOROSIS
     Route: 065

REACTIONS (5)
  - ANAPHYLACTIC SHOCK [None]
  - FEELING HOT [None]
  - HYPOTENSION [None]
  - MALAISE [None]
  - RASH ERYTHEMATOUS [None]
